FAERS Safety Report 10452445 (Version 1)
Quarter: 2014Q3

REPORT INFORMATION
  Report Type: Spontaneous
  Country: US (occurrence: None)
  Receive Date: 20140912
  Receipt Date: 20140912
  Transmission Date: 20150326
  Serious: No
  Sender: FDA-Public Use
  Company Number: None

PATIENT
  Age: 67 Year
  Sex: Male
  Weight: 60.9 kg

DRUGS (4)
  1. CARBOPLATIN. [Suspect]
     Active Substance: CARBOPLATIN
  2. TAXOL [Suspect]
     Active Substance: PACLITAXEL
  3. ALIMTA [Suspect]
     Active Substance: PEMETREXED DISODIUM
  4. BEVACIZUMAB (RHUMAB VEGF) (704865) [Suspect]
     Active Substance: BEVACIZUMAB

REACTIONS (6)
  - Peritonitis [None]
  - Post procedural pneumonia [None]
  - Postoperative renal failure [None]
  - Fall [None]
  - Cardiac arrest [None]
  - Duodenal ulcer perforation [None]

NARRATIVE: CASE EVENT DATE: 20140907
